FAERS Safety Report 8030676-1 (Version None)
Quarter: 2012Q1

REPORT INFORMATION
  Report Type: 
  Country: None (occurrence: None)
  Receive Date: 20120109
  Receipt Date: 20120103
  Transmission Date: 20120608
  Serious: Yes (Other)
  Sender: FDA-Public Use
  Company Number: PHEH2012US000550

PATIENT

DRUGS (9)
  1. ADVAIR DISKUS 100/50 [Concomitant]
  2. DIOVAN [Suspect]
     Dosage: 40 MG, UNK
  3. SINGULAIR [Concomitant]
  4. ACETAMINOPHEN [Concomitant]
  5. LEVOTHYROXINE SODIUM [Concomitant]
  6. ALBUTEROL [Concomitant]
  7. ANALGESICS [Concomitant]
     Dosage: UNK
  8. ZOLOFT [Concomitant]
  9. ASPIRIN [Concomitant]

REACTIONS (6)
  - EPISTAXIS [None]
  - RASH [None]
  - ASTHMA [None]
  - DEPRESSION [None]
  - COELIAC DISEASE [None]
  - ANXIETY [None]
